FAERS Safety Report 9447600 (Version 1)
Quarter: 2013Q3

REPORT INFORMATION
  Report Type: Spontaneous
  Country: US (occurrence: None)
  Receive Date: 20130807
  Receipt Date: 20130807
  Transmission Date: 20140515
  Serious: Yes (Death)
  Sender: FDA-Public Use
  Company Number: None

PATIENT
  Age: 73 Year
  Sex: Female

DRUGS (2)
  1. AFINITOR [Suspect]
     Indication: BREAST CANCER
     Dosage: 1 TAB DAILY PO
     Route: 048
     Dates: start: 20130130, end: 20130802
  2. EXEMESTANE 25MG GRE [Suspect]
     Dosage: 1 TAB  DAILY PO
     Route: 048

REACTIONS (1)
  - Death [None]
